FAERS Safety Report 24218513 (Version 2)
Quarter: 2024Q3

REPORT INFORMATION
  Report Type: Report from Study
  Country: US (occurrence: US)
  Receive Date: 20240816
  Receipt Date: 20240911
  Transmission Date: 20241017
  Serious: Yes (Hospitalization, Other)
  Sender: SUNOVION
  Company Number: US-MYOVANT SCIENCES GMBH-2024MYSCI0400719

PATIENT

DRUGS (4)
  1. ORGOVYX [Suspect]
     Active Substance: RELUGOLIX
     Indication: Prostate cancer
     Dosage: UNK
     Route: 048
  2. ORGOVYX [Suspect]
     Active Substance: RELUGOLIX
     Dosage: UNK
     Route: 048
  3. ORGOVYX [Suspect]
     Active Substance: RELUGOLIX
     Dosage: 120 MILLIGRAM, QD
     Route: 048
     Dates: start: 20240416
  4. ORGOVYX [Suspect]
     Active Substance: RELUGOLIX
     Dosage: 120 MILLIGRAM, QD
     Route: 048
     Dates: start: 20240416

REACTIONS (15)
  - Cholecystectomy [Unknown]
  - Syncope [Not Recovered/Not Resolved]
  - Sepsis [Unknown]
  - Neuropathy peripheral [Unknown]
  - Arrhythmia [Unknown]
  - Hypotension [Unknown]
  - Decreased appetite [Recovering/Resolving]
  - Secretion discharge [Unknown]
  - Full blood count decreased [Unknown]
  - Tachycardia [Unknown]
  - Hot flush [Not Recovered/Not Resolved]
  - Presyncope [Not Recovered/Not Resolved]
  - Heat exhaustion [Unknown]
  - Hyperhidrosis [Unknown]
  - Fatigue [Unknown]

NARRATIVE: CASE EVENT DATE: 20240701
